FAERS Safety Report 7346000-3 (Version None)
Quarter: 2011Q1

REPORT INFORMATION
  Report Type: 
  Country: None (occurrence: None)
  Receive Date: 20110305
  Receipt Date: 20110305
  Transmission Date: 20110831
  Serious: Yes (Disabling)
  Sender: FDA-Public Use
  Company Number: None

PATIENT
  Age: 41 Year
  Sex: Female
  Weight: 60.782 kg

DRUGS (3)
  1. MYLAN GENERIC VALTREX [Concomitant]
  2. VALACYCLOVIR HYDROCHLORIDE [Suspect]
     Indication: HERPES VIRUS INFECTION
     Dosage: 2 GRAMS BID PO
     Route: 048
     Dates: start: 20101210, end: 20101211
  3. VALACYCLOVIR HYDROCHLORIDE [Suspect]
     Indication: HERPES VIRUS INFECTION
     Dosage: 2 GRAMS BID PO
     Route: 048
     Dates: start: 20101102, end: 20101103

REACTIONS (2)
  - DRUG INEFFECTIVE [None]
  - PRODUCT SUBSTITUTION ISSUE [None]
